FAERS Safety Report 4391556-6 (Version None)
Quarter: 2004Q3

REPORT INFORMATION
  Report Type: 
  Country: None (occurrence: None)
  Receive Date: 20040701
  Receipt Date: 20040621
  Transmission Date: 20050211
  Serious: Yes (Hospitalization, Other)
  Sender: FDA-Public Use
  Company Number: 2004037831

PATIENT
  Age: 73 Year
  Sex: Female

DRUGS (11)
  1. GEODON [Suspect]
     Indication: HALLUCINATION
     Dosage: 80 MG (80 MG, 1 IN 1 D)
     Dates: start: 20040322, end: 20040602
  2. ZALEPLON (ZALEPLON) [Concomitant]
  3. CLOPIDOGREL BISULFATE [Concomitant]
  4. ESOMEPRAZOLE (ESOMEPRAZOLE) [Concomitant]
  5. POTASSIUM (POTASSIUM) [Concomitant]
  6. CALCIUM (CALCIUM) [Concomitant]
  7. IRON (IRON) [Concomitant]
  8. CHONDROITIN/GLUCOSAMINE (CHONDROITIN, GLUCOSAMINE) [Concomitant]
  9. ASCORBIC ACID [Concomitant]
  10. MULTIVITAMINS (ASCORBIC ACID, ERGOCALCIFEROL, FOLIC ACID, NICOTINAMIDE [Concomitant]
  11. HYDROCHLOROTHIAZIDE [Concomitant]

REACTIONS (7)
  - BLOOD GLUCOSE INCREASED [None]
  - BLOOD MAGNESIUM ABNORMAL [None]
  - BLOOD POTASSIUM ABNORMAL [None]
  - CHEST PAIN [None]
  - HYPOAESTHESIA [None]
  - MYALGIA [None]
  - NEUROLEPTIC MALIGNANT SYNDROME [None]
